FAERS Safety Report 5920415-X (Version None)
Quarter: 2008Q4

REPORT INFORMATION
  Report Type: 
  Country: None (occurrence: None)
  Receive Date: 20081014
  Receipt Date: 20080924
  Transmission Date: 20090506
  Serious: Yes (Other)
  Sender: FDA-Public Use
  Company Number: 2008S1012887

PATIENT
  Age: 80 Year
  Sex: Female

DRUGS (9)
  1. PRAVASTATIN [Suspect]
     Indication: HYPERCHOLESTEROLAEMIA
     Dosage: 20 MG;DAILY;ORAL
     Route: 048
  2. AMITRIPTYLINE HYDROCHLORIDE [Suspect]
     Indication: DEPRESSION
     Dosage: 50 MG;DAILY;ORAL
     Route: 048
  3. ASPIRIN [Concomitant]
  4. LEVOTHYROXINE SODIUM [Concomitant]
  5. ATENOLOL [Concomitant]
  6. ARTHROTEC [Concomitant]
  7. AMITRIPTYLINE HCL [Concomitant]
  8. PRAVASTATIN [Concomitant]
  9. WARFARIN SODIUM [Concomitant]

REACTIONS (11)
  - BLOOD ALBUMIN DECREASED [None]
  - BLOOD PRESSURE DIASTOLIC DECREASED [None]
  - BLOOD UREA INCREASED [None]
  - COLITIS [None]
  - DEHYDRATION [None]
  - FIBROSIS [None]
  - HAEMOGLOBIN DECREASED [None]
  - LARGE INTESTINAL ULCER [None]
  - PLATELET COUNT INCREASED [None]
  - PSEUDOPOLYPOSIS [None]
  - PULMONARY EMBOLISM [None]
